FAERS Safety Report 5468049-8 (Version None)
Quarter: 2007Q3

REPORT INFORMATION
  Report Type: 
  Country: None (occurrence: None)
  Receive Date: 20070820
  Receipt Date: 20070420
  Transmission Date: 20080115
  Serious: No
  Sender: FDA-Public Use
  Company Number: WAES 0702USA04043

PATIENT
  Age: 64 Year
  Sex: Female
  Weight: 86.637 kg

DRUGS (9)
  1. JANUVIA [Suspect]
     Indication: DIABETES MELLITUS
     Dosage: 100 MG/DAILY/PO
     Route: 048
     Dates: start: 20070219, end: 20070305
  2. EMANIL [Concomitant]
  3. MICRO-K [Concomitant]
  4. MOBIC [Concomitant]
  5. ZESTRONIC [Concomitant]
  6. [THERAPY UNSPECIFIED] [Concomitant]
  7. ASPIRIN [Concomitant]
  8. CALCIUM (UNSPECIFIED) [Concomitant]
  9. VITAMINS (UNSPECIFIED) [Concomitant]

REACTIONS (2)
  - ASTHENIA [None]
  - FATIGUE [None]
